FAERS Safety Report 22004737 (Version 1)
Quarter: 2023Q1

REPORT INFORMATION
  Report Type: Spontaneous
  Country: US (occurrence: None)
  Receive Date: 20230215
  Receipt Date: 20230215
  Transmission Date: 20230418
  Serious: Yes (Death)
  Sender: FDA-Public Use
  Company Number: None

PATIENT
  Sex: Male

DRUGS (1)
  1. MYOBLOC [Suspect]
     Active Substance: RIMABOTULINUMTOXINB
     Indication: Salivary gland disorder
     Dosage: OTHER STRENGTH : 2500 UNITS/0.5ML?OTHER QUANTITY : 2500 UNITS/0.5ML ?OTHER FREQUENCY : 3 TIMES A MON
     Route: 030
     Dates: start: 20211111, end: 202212

REACTIONS (1)
  - Death [None]
